FAERS Safety Report 8911760 (Version 1)
Quarter: 2012Q4

REPORT INFORMATION
  Report Type: 
  Country: US (occurrence: US)
  Receive Date: 20121115
  Receipt Date: 20121115
  Transmission Date: 20130627
  Serious: Yes (Hospitalization)
  Sender: FDA-Public Use
  Company Number: US-GLAXOSMITHKLINE-A0814523A

PATIENT
  Sex: Female
  Weight: 118.2 kg

DRUGS (14)
  1. AVANDIA [Suspect]
     Indication: TYPE 2 DIABETES MELLITUS
     Dosage: 8MG Per day
     Route: 048
     Dates: start: 199911, end: 200201
  2. GLUCOTROL XL [Concomitant]
  3. VIOXX [Concomitant]
  4. ESTRACE [Concomitant]
  5. PROVENTIL [Concomitant]
  6. ADVAIR [Concomitant]
  7. XOPENEX [Concomitant]
  8. HCTZ [Concomitant]
  9. EFFEXOR [Concomitant]
  10. INSULIN [Concomitant]
  11. MIRAPEX [Concomitant]
  12. ALTACE [Concomitant]
  13. ZOVIRAX [Concomitant]
  14. XENICAL [Concomitant]

REACTIONS (19)
  - Cardiac failure congestive [Unknown]
  - Transient ischaemic attack [Unknown]
  - Chest pain [None]
  - Pneumonia [None]
  - Ankle fracture [None]
  - Sleep apnoea syndrome [None]
  - Peripheral vascular disorder [None]
  - Anaemia [None]
  - Pulmonary embolism [None]
  - Cellulitis staphylococcal [None]
  - Pulmonary congestion [None]
  - Mitral valve calcification [None]
  - Mitral valve stenosis [None]
  - Chronic obstructive pulmonary disease [None]
  - Emphysema [None]
  - Aortic arteriosclerosis [None]
  - Aortic valve incompetence [None]
  - Mitral valve incompetence [None]
  - Tricuspid valve incompetence [None]
